FAERS Safety Report 10962489 (Version 1)
Quarter: 2015Q1

REPORT INFORMATION
  Report Type: Report from Study
  Country: DE (occurrence: DE)
  Receive Date: 20150327
  Receipt Date: 20150327
  Transmission Date: 20150721
  Serious: Yes (Hospitalization, Other)
  Sender: FDA-Public Use
  Company Number: DE-GSKJP-DK201321948002

PATIENT
  Age: 73 Year
  Sex: Female
  Weight: 78 kg

DRUGS (10)
  1. TYKERB [Suspect]
     Active Substance: LAPATINIB DITOSYLATE
     Indication: BREAST CANCER
  2. ASPIRIN. [Concomitant]
     Active Substance: ASPIRIN
     Dates: start: 200806, end: 20130720
  3. TRASTUZUMAB [Suspect]
     Active Substance: TRASTUZUMAB
     Indication: BREAST CANCER
     Route: 058
     Dates: start: 20120914
  4. BETAHISTINE [Concomitant]
     Active Substance: BETAHISTINE
     Dates: start: 200806
  5. PANTOZOL [Concomitant]
     Active Substance: PANTOPRAZOLE SODIUM
     Dates: start: 200907
  6. SULPIRIDE [Concomitant]
     Active Substance: SULPIRIDE
     Dates: start: 200806
  7. CLEXANE [Concomitant]
     Active Substance: ENOXAPARIN SODIUM
     Dates: start: 20130208, end: 20130727
  8. CAPECITABINE. [Suspect]
     Active Substance: CAPECITABINE
     Indication: BREAST CANCER
     Dates: start: 20130910
  9. CO-DIOVANE [Concomitant]
     Dates: start: 200805
  10. RECOMBINANT HUMAN HYALURONIDASE [Suspect]
     Active Substance: HYALURONIDASE
     Indication: BREAST CANCER
     Route: 058
     Dates: start: 20120914

REACTIONS (1)
  - Acute kidney injury [Recovered/Resolved]

NARRATIVE: CASE EVENT DATE: 20130917
